FAERS Safety Report 7668482-X (Version None)
Quarter: 2011Q3

REPORT INFORMATION
  Report Type: 
  Country: None (occurrence: None)
  Receive Date: 20110808
  Receipt Date: 20110722
  Transmission Date: 20111222
  Serious: Yes (Hospitalization)
  Sender: FDA-Public Use
  Company Number: FR-SANOFI-AVENTIS-2011SA046825

PATIENT
  Age: 54 Year
  Sex: Male

DRUGS (3)
  1. ELOXATIN [Suspect]
     Route: 042
  2. FLUOROURACIL [Suspect]
     Route: 042
  3. CAMPTOSAR [Suspect]
     Route: 042

REACTIONS (4)
  - CHOLINERGIC SYNDROME [None]
  - SPEECH DISORDER [None]
  - PALMAR-PLANTAR ERYTHRODYSAESTHESIA SYNDROME [None]
  - DIARRHOEA [None]
